FAERS Safety Report 5873760-0 (Version None)
Quarter: 2008Q3

REPORT INFORMATION
  Report Type: 
  Country: None (occurrence: None)
  Receive Date: 20080904
  Receipt Date: 20080904
  Transmission Date: 20090109
  Serious: No
  Sender: FDA-Public Use
  Company Number: None

PATIENT
  Age: 11 Month
  Sex: Male
  Weight: 89 kg

DRUGS (1)
  1. VALPROIC ACID [Suspect]

REACTIONS (12)
  - ACNE [None]
  - ACNE PUSTULAR [None]
  - ARTHROPATHY [None]
  - BLISTER [None]
  - CONFUSIONAL STATE [None]
  - DEPRESSION [None]
  - DYSPHAGIA [None]
  - DYSPNOEA [None]
  - ILL-DEFINED DISORDER [None]
  - PRURITUS [None]
  - RASH GENERALISED [None]
  - SUICIDAL IDEATION [None]
